FAERS Safety Report 8574459-2 (Version None)
Quarter: 2012Q3

REPORT INFORMATION
  Report Type: 
  Country: None (occurrence: None)
  Receive Date: 20120806
  Receipt Date: 20111010
  Transmission Date: 20120928
  Serious: No
  Sender: FDA-Public Use
  Company Number: US-ABBOTT-11P-163-0862816-00

PATIENT
  Sex: Female
  Weight: 87.168 kg

DRUGS (20)
  1. EXCEDRIN EXTRA STRENGTH TABLETS [Concomitant]
     Indication: PAIN
  2. IBUPROFEN [Concomitant]
     Indication: PAIN
  3. TOPAMAX [Concomitant]
     Indication: HEADACHE
  4. DEPAKOTE ER [Suspect]
     Indication: HEADACHE
     Route: 048
     Dates: end: 20110823
  5. FLEXERIL [Concomitant]
     Indication: BACK PAIN
  6. LORTAB [Concomitant]
     Indication: BACK PAIN
  7. CINRYZE [Suspect]
     Indication: HEREDITARY ANGIOEDEMA
     Dosage: INFUSED VIA CENTRAL LINE OVER 10 MINUTES
     Route: 042
     Dates: start: 20110501, end: 20110801
  8. BENADRYL [Concomitant]
     Indication: URTICARIA
  9. PRILOSEC [Concomitant]
     Indication: GASTROOESOPHAGEAL REFLUX DISEASE
  10. EXCEDRIN EXTRA STRENGTH TABLETS [Concomitant]
     Indication: HEADACHE
  11. IBUPROFEN [Concomitant]
     Indication: HEADACHE
  12. NEURONTIN [Concomitant]
     Indication: RESTLESS LEGS SYNDROME
  13. KALBITOR [Concomitant]
     Indication: HEREDITARY ANGIOEDEMA
  14. KLONOPIN [Concomitant]
     Indication: ANXIETY
  15. AMITRIPTYLINE HCL [Concomitant]
     Indication: PRODUCT USED FOR UNKNOWN INDICATION
  16. TRAMADOL HCL [Concomitant]
     Indication: BACK PAIN
  17. IBUPROFEN [Concomitant]
     Indication: PREMEDICATION
  18. CELEXA [Concomitant]
     Indication: DEPRESSION
  19. LAMICTAL [Concomitant]
     Indication: AFFECTIVE DISORDER
  20. KLONOPIN [Concomitant]
     Indication: INSOMNIA

REACTIONS (10)
  - INFUSION RELATED REACTION [None]
  - MALAISE [None]
  - FEELING ABNORMAL [None]
  - PRODUCT QUALITY ISSUE [None]
  - DIARRHOEA [None]
  - HEADACHE [None]
  - HEREDITARY ANGIOEDEMA [None]
  - NAUSEA [None]
  - DIZZINESS [None]
  - BACK PAIN [None]
